FAERS Safety Report 11569348 (Version 1)
Quarter: 2015Q3

REPORT INFORMATION
  Report Type: Spontaneous
  Country: US (occurrence: US)
  Receive Date: 20150929
  Receipt Date: 20150929
  Transmission Date: 20151125
  Serious: Yes (Hospitalization, Other)
  Sender: FDA-Public Use
  Company Number: US-JNJFOC-20150919565

PATIENT
  Age: 80 Year
  Sex: Female

DRUGS (3)
  1. XARELTO [Suspect]
     Active Substance: RIVAROXABAN
     Indication: CEREBROVASCULAR ACCIDENT PROPHYLAXIS
     Route: 048
  2. XARELTO [Suspect]
     Active Substance: RIVAROXABAN
     Indication: ATRIAL FIBRILLATION
     Route: 048
  3. BABY ASPIRIN [Suspect]
     Active Substance: ASPIRIN
     Indication: CHEST PAIN
     Route: 065

REACTIONS (3)
  - Gastrointestinal haemorrhage [Unknown]
  - International normalised ratio increased [Recovering/Resolving]
  - Chest pain [Unknown]
